FAERS Safety Report 13765209 (Version 1)
Quarter: 2017Q3

REPORT INFORMATION
  Report Type: Spontaneous
  Country: US (occurrence: US)
  Receive Date: 20170718
  Receipt Date: 20170718
  Transmission Date: 20171127
  Serious: Yes (Other)
  Sender: FDA-Public Use
  Company Number: US-ARBOR PHARMACEUTICALS, LLC-US-2017ARB000670

PATIENT

DRUGS (2)
  1. HORIZANT [Suspect]
     Active Substance: GABAPENTIN ENACARBIL
     Dosage: 2 DF, QD
     Dates: start: 201610, end: 20161106
  2. HORIZANT [Suspect]
     Active Substance: GABAPENTIN ENACARBIL
     Indication: COMPLEX REGIONAL PAIN SYNDROME
     Dosage: 1 DF, QD
     Route: 048
     Dates: start: 201603, end: 201610

REACTIONS (3)
  - Dystonia [Unknown]
  - Chorea [Unknown]
  - Drug hypersensitivity [Unknown]

NARRATIVE: CASE EVENT DATE: 201610
